FAERS Safety Report 14985840 (Version 3)
Quarter: 2018Q2

REPORT INFORMATION
  Report Type: Spontaneous
  Country: JP (occurrence: JP)
  Receive Date: 20180607
  Receipt Date: 20180625
  Transmission Date: 20180711
  Serious: Yes (Hospitalization, Other)
  Sender: FDA-Public Use
  Company Number: JP-SHIRE-JP201820588AA

PATIENT
  Age: 84 Year
  Sex: Female

DRUGS (1)
  1. AGRYLIN [Suspect]
     Active Substance: ANAGRELIDE HYDROCHLORIDE
     Indication: PRODUCT USED FOR UNKNOWN INDICATION
     Dosage: 2X/DAY:BID(1.5 MG IN THE MORNING AND 0.5 MG IN THE EVENING)
     Route: 065

REACTIONS (1)
  - Heart valve operation [Unknown]

NARRATIVE: CASE EVENT DATE: 201805
